FAERS Safety Report 5815003-X (Version None)
Quarter: 2008Q3

REPORT INFORMATION
  Report Type: 
  Country: None (occurrence: None)
  Receive Date: 20080718
  Receipt Date: 20080715
  Transmission Date: 20090109
  Serious: Yes (Hospitalization)
  Sender: FDA-Public Use
  Company Number: A0737693A

PATIENT
  Age: 7 Day
  Sex: Male

DRUGS (3)
  1. MEPRON [Suspect]
     Indication: BABESIOSIS
  2. AZITHROMYCIN [Concomitant]
  3. CAFFEINE CITRATE [Concomitant]

REACTIONS (1)
  - OFF LABEL USE [None]
